FAERS Safety Report 16827012 (Version 1)
Quarter: 2019Q3

REPORT INFORMATION
  Report Type: Spontaneous
  Country: US (occurrence: US)
  Receive Date: 20190727
  Receipt Date: 20190727
  Transmission Date: 20191005
  Serious: Yes (Hospitalization)
  Sender: FDA-Public Use
  Company Number: None

PATIENT
  Age: 74 Year
  Sex: Male
  Weight: 64.23 kg

DRUGS (4)
  1. ALOXI [Suspect]
     Active Substance: PALONOSETRON HYDROCHLORIDE
     Dates: end: 20190725
  2. FOSAPREPITANT DIMEGLUMINE. [Suspect]
     Active Substance: FOSAPREPITANT DIMEGLUMINE
     Dates: end: 20190715
  3. DEXAMETHASONE. [Suspect]
     Active Substance: DEXAMETHASONE
     Dates: end: 20190715
  4. OLANZAPINE. [Suspect]
     Active Substance: OLANZAPINE
     Dates: end: 20190715

REACTIONS (8)
  - Vascular pseudoaneurysm [None]
  - Coronary artery occlusion [None]
  - Haematoma [None]
  - Hyperkalaemia [None]
  - Blood creatinine increased [None]
  - Hyponatraemia [None]
  - Thrombocytopenia [None]
  - Acute myocardial infarction [None]

NARRATIVE: CASE EVENT DATE: 20190716
